FAERS Safety Report 15375133 (Version 1)
Quarter: 2018Q3

REPORT INFORMATION
  Report Type: Spontaneous
  Country: US (occurrence: US)
  Receive Date: 20180912
  Receipt Date: 20180912
  Transmission Date: 20181010
  Serious: Yes (Hospitalization, Other)
  Sender: FDA-Public Use
  Company Number: US-OTSUKA-2018_019370

PATIENT

DRUGS (2)
  1. ABILIFY [Suspect]
     Active Substance: ARIPIPRAZOLE
     Indication: ANXIETY
  2. ABILIFY [Suspect]
     Active Substance: ARIPIPRAZOLE
     Indication: BIPOLAR DISORDER
     Dosage: 10 MG, QD
     Route: 065
     Dates: end: 2016

REACTIONS (19)
  - Compulsive sexual behaviour [Recovered/Resolved]
  - Trichotillomania [Recovered/Resolved]
  - Gambling disorder [Recovered/Resolved]
  - Shoplifting [Unknown]
  - Hyperphagia [Unknown]
  - Divorced [Unknown]
  - Mental disorder [Unknown]
  - Suicidal ideation [Recovered/Resolved]
  - Compulsive shopping [Recovered/Resolved]
  - Theft [Unknown]
  - Suicide attempt [Recovered/Resolved]
  - Sexual dysfunction [Recovered/Resolved]
  - Economic problem [Unknown]
  - Product use in unapproved indication [Unknown]
  - Loss of employment [Unknown]
  - Sexually transmitted disease [Unknown]
  - Dermatillomania [Recovered/Resolved]
  - Obsessive-compulsive disorder [Unknown]
  - Hypersexuality [Unknown]

NARRATIVE: CASE EVENT DATE: 2010
